FAERS Safety Report 16228472 (Version 1)
Quarter: 2019Q2

REPORT INFORMATION
  Report Type: Spontaneous
  Country: US (occurrence: US)
  Receive Date: 20190319
  Receipt Date: 20190319
  Transmission Date: 20190711
  Serious: No
  Sender: FDA-Public Use
  Company Number: None

PATIENT
  Age: 22 Year
  Sex: Male

DRUGS (2)
  1. OSELTAMIVIR 75MG [Suspect]
     Active Substance: OSELTAMIVIR
     Indication: INFLUENZA
     Route: 048
  2. TRANSDERM SCOP [Suspect]
     Active Substance: SCOPOLAMINE
     Indication: DIZZINESS
     Dosage: ?          OTHER DOSE:1 PATCH;OTHER FREQUENCY:Q 3 DAYS;?
     Route: 062

REACTIONS (4)
  - Product storage error [None]
  - Drug monitoring procedure not performed [None]
  - Product dispensing error [None]
  - Product packaging confusion [None]

NARRATIVE: CASE EVENT DATE: 20181008
